FAERS Safety Report 15629376 (Version 3)
Quarter: 2025Q3

REPORT INFORMATION
  Report Type: Spontaneous
  Country: EU (occurrence: EU)
  Receive Date: 20181117
  Receipt Date: 20250709
  Transmission Date: 20251021
  Serious: Yes (Other)
  Sender: AUROBINDO
  Company Number: EU-AUROBINDO-AUR-APL-2018-055476

PATIENT
  Age: 5 Month
  Sex: Male

DRUGS (11)
  1. APREPITANT [Suspect]
     Active Substance: APREPITANT
     Indication: Vomiting
     Dosage: 2 MILLIGRAM/KILOGRAM, ONCE A DAY
     Route: 065
  2. VORICONAZOLE [Suspect]
     Active Substance: VORICONAZOLE
     Indication: Product used for unknown indication
     Route: 065
  3. LORAZEPAM [Concomitant]
     Active Substance: LORAZEPAM
     Indication: Vomiting
     Route: 065
  4. FOSAPREPITANT [Concomitant]
     Active Substance: FOSAPREPITANT
     Indication: Vomiting
     Dosage: 2 MILLIGRAM/KILOGRAM, ONCE A DAY
     Route: 065
  5. FOSAPREPITANT [Concomitant]
     Active Substance: FOSAPREPITANT
     Dosage: 3 MILLIGRAM/KILOGRAM, ONCE A DAY
     Route: 065
  6. THIOTEPA [Concomitant]
     Active Substance: THIOTEPA
     Indication: Product used for unknown indication
     Route: 065
  7. CYCLOSPORINE [Concomitant]
     Active Substance: CYCLOSPORINE
     Indication: Prophylaxis against graft versus host disease
     Route: 065
  8. GRANISETRON [Concomitant]
     Active Substance: GRANISETRON
     Indication: Vomiting
     Route: 065
  9. TREOSULFAN [Concomitant]
     Active Substance: TREOSULFAN
     Indication: Product used for unknown indication
     Route: 065
  10. FLUDARABINE [Concomitant]
     Active Substance: FLUDARABINE PHOSPHATE
     Indication: Product used for unknown indication
     Route: 065
  11. PREDNISONE [Concomitant]
     Active Substance: PREDNISONE
     Indication: Prophylaxis against graft versus host disease
     Route: 065

REACTIONS (2)
  - Drug-induced liver injury [Recovered/Resolved]
  - Off label use [Unknown]
